FAERS Safety Report 7757090-8 (Version None)
Quarter: 2011Q3

REPORT INFORMATION
  Report Type: 
  Country: None (occurrence: None)
  Receive Date: 20110916
  Receipt Date: 20110912
  Transmission Date: 20111222
  Serious: Yes (Other)
  Sender: FDA-Public Use
  Company Number: GB-BRISTOL-MYERS SQUIBB COMPANY-16054397

PATIENT
  Age: 67 Year
  Sex: Female

DRUGS (2)
  1. LAMOTRIGINE [Suspect]
  2. ARIPIPRAZOLE [Suspect]
     Dosage: REDUCED TO 20 MG ON 8SEP11

REACTIONS (1)
  - PSYCHOTIC DISORDER [None]
